FAERS Safety Report 24275689 (Version 2)
Quarter: 2024Q3

REPORT INFORMATION
  Report Type: Spontaneous
  Country: DK (occurrence: DK)
  Receive Date: 20240903
  Receipt Date: 20240903
  Transmission Date: 20241016
  Serious: Yes (Hospitalization)
  Sender: SANDOZ
  Company Number: DK-ROCHE-3551737

PATIENT
  Age: 49 Year
  Sex: Male

DRUGS (5)
  1. MYCOPHENOLATE MOFETIL [Suspect]
     Active Substance: MYCOPHENOLATE MOFETIL
     Indication: Immunosuppressant drug therapy
     Dosage: UNK
     Route: 065
  2. MYCOPHENOLATE MOFETIL [Suspect]
     Active Substance: MYCOPHENOLATE MOFETIL
     Dosage: UNK
     Route: 065
  3. PREDNISOLONE [Suspect]
     Active Substance: PREDNISOLONE
     Indication: Immunosuppressant drug therapy
     Dosage: UNK
     Route: 065
  4. TACROLIMUS [Suspect]
     Active Substance: TACROLIMUS
     Indication: Immunosuppressant drug therapy
     Dosage: UNK
     Route: 065
  5. VALGANCICLOVIR [Suspect]
     Active Substance: VALGANCICLOVIR
     Indication: Cytomegalovirus infection
     Dosage: 900 MG X 2 DAYS.
     Route: 065

REACTIONS (6)
  - Erythema [Recovered/Resolved]
  - Rash maculo-papular [Recovered/Resolved]
  - Cytomegalovirus infection [Recovered/Resolved]
  - Toxic epidermal necrolysis [Recovered/Resolved]
  - Rash [Recovered/Resolved]
  - Off label use [Unknown]
